FAERS Safety Report 9131161 (Version 1)
Quarter: 2013Q1

REPORT INFORMATION
  Report Type: Spontaneous
  Country: JP (occurrence: JP)
  Receive Date: 20130301
  Receipt Date: 20130301
  Transmission Date: 20140127
  Serious: Yes (Other)
  Sender: FDA-Public Use
  Company Number: JP-PFIZER INC-2013070690

PATIENT
  Sex: Female

DRUGS (3)
  1. CELECOX [Suspect]
     Dosage: UNK
     Route: 048
  2. LIVALO [Concomitant]
     Dosage: 1 MG, UNK
  3. AZULFIDINE EN [Concomitant]
     Dosage: 500 MG, UNK

REACTIONS (1)
  - Haemorrhage subcutaneous [Unknown]
